FAERS Safety Report 17036277 (Version 1)
Quarter: 2019Q4

REPORT INFORMATION
  Report Type: Spontaneous
  Country: GB (occurrence: GB)
  Receive Date: 20191114
  Receipt Date: 20191114
  Transmission Date: 20200122
  Serious: Yes (Other)
  Sender: FDA-Public Use
  Company Number: None

PATIENT
  Age: 51 Year
  Sex: Female
  Weight: 78.3 kg

DRUGS (11)
  1. VITAMIN D [Concomitant]
     Active Substance: VITAMIN D NOS
  2. VITAMIN C [Concomitant]
     Active Substance: ASCORBIC ACID
  3. MELATONIN [Concomitant]
     Active Substance: MELATONIN
  4. METFORMIN [Concomitant]
     Active Substance: METFORMIN HYDROCHLORIDE
  5. RANITIDINE. [Concomitant]
     Active Substance: RANITIDINE
  6. FISH OIL [Concomitant]
     Active Substance: FISH OIL
  7. OMEPRAZOLE. [Concomitant]
     Active Substance: OMEPRAZOLE
  8. FUROSEMIDE. [Concomitant]
     Active Substance: FUROSEMIDE
  9. RANITIDINE 150 MG [Suspect]
     Active Substance: RANITIDINE
     Indication: HISTAMINE ABNORMAL
     Dosage: ?          QUANTITY:1 CAPSULE(S);?
     Route: 048
     Dates: start: 20190508, end: 20191111
  10. VALSARTAN. [Concomitant]
     Active Substance: VALSARTAN
  11. LEVOTHROXINE [Concomitant]
     Active Substance: LEVOTHYROXINE

REACTIONS (7)
  - Renal impairment [None]
  - Headache [None]
  - Platelet count increased [None]
  - Palpitations [None]
  - Hepatic enzyme increased [None]
  - Tachycardia [None]
  - Malaise [None]

NARRATIVE: CASE EVENT DATE: 20191011
